FAERS Safety Report 6511981-4 (Version None)
Quarter: 2009Q4

REPORT INFORMATION
  Report Type: 
  Country: None (occurrence: None)
  Receive Date: 20091222
  Receipt Date: 20090512
  Transmission Date: 20100525
  Serious: No
  Sender: FDA-Public Use
  Company Number: US-ASTRAZENECA-2009UW12246

PATIENT
  Sex: Male

DRUGS (3)
  1. CRESTOR [Suspect]
     Indication: CALCIFICATION OF MUSCLE
     Route: 048
  2. CRESTOR [Suspect]
     Route: 048
     Dates: start: 20081101
  3. FLOMAX [Concomitant]

REACTIONS (1)
  - PARAESTHESIA [None]
